FAERS Safety Report 12637239 (Version 1)
Quarter: 2016Q3

REPORT INFORMATION
  Report Type: Report from Study
  Country: JP (occurrence: JP)
  Receive Date: 20160809
  Receipt Date: 20160809
  Transmission Date: 20161109
  Serious: Yes (Hospitalization, Other)
  Sender: FDA-Public Use
  Company Number: JP-ACTELION-A-CH2016-140395

PATIENT
  Age: 73 Year
  Sex: Female

DRUGS (13)
  1. CLOPIDOGREL SULFATE [Concomitant]
     Active Substance: CLOPIDOGREL BISULFATE
  2. FEBUXOSTAT. [Concomitant]
     Active Substance: FEBUXOSTAT
  3. METILDIGOXIN [Concomitant]
     Active Substance: METILDIGOXIN
  4. FAMOTIDINE. [Concomitant]
     Active Substance: FAMOTIDINE
  5. OPSUMIT [Suspect]
     Active Substance: MACITENTAN
     Indication: PULMONARY ARTERIAL HYPERTENSION
     Dosage: 10 MG, OD
     Route: 048
     Dates: start: 20160118
  6. FERROUS CITRATE [Concomitant]
     Active Substance: FERROUS CITRATE
  7. BISOPROLOL FUMARATE. [Concomitant]
     Active Substance: BISOPROLOL FUMARATE
  8. ROSUVASTATIN. [Concomitant]
     Active Substance: ROSUVASTATIN
  9. IMIDAPRIL HYDROCHLORIDE [Concomitant]
     Active Substance: IMIDAPRIL HYDROCHLORIDE
  10. RIVAROXABAN [Concomitant]
     Active Substance: RIVAROXABAN
  11. MIGLITOL. [Concomitant]
     Active Substance: MIGLITOL
  12. TRICHLORMETHIAZIDE [Concomitant]
     Active Substance: TRICHLORMETHIAZIDE
  13. BENZBROMARONE [Concomitant]
     Active Substance: BENZBROMARONE

REACTIONS (4)
  - Pancytopenia [Recovered/Resolved]
  - Weight increased [Recovered/Resolved]
  - Cardiac failure [Recovering/Resolving]
  - Chronic kidney disease [Unknown]

NARRATIVE: CASE EVENT DATE: 20160204
